FAERS Safety Report 14686032 (Version 1)
Quarter: 2018Q1

REPORT INFORMATION
  Report Type: Spontaneous
  Country: US (occurrence: US)
  Receive Date: 20180327
  Receipt Date: 20180327
  Transmission Date: 20180509
  Serious: No
  Sender: FDA-Public Use
  Company Number: US-PFIZER INC-2018124928

PATIENT
  Age: 46 Year
  Sex: Female

DRUGS (3)
  1. CHLORHEXIDINE GLUCONATE. [Suspect]
     Active Substance: CHLORHEXIDINE GLUCONATE
     Dosage: UNK
  2. NEOSPORIN [Suspect]
     Active Substance: BACITRACIN ZINC\NEOMYCIN SULFATE\POLYMYXIN B SULFATE
     Dosage: UNK
  3. BETASEPT [Suspect]
     Active Substance: CHLORHEXIDINE GLUCONATE
     Dosage: UNK

REACTIONS (2)
  - Pruritus [Unknown]
  - Drug hypersensitivity [Unknown]
